FAERS Safety Report 16279505 (Version 2)
Quarter: 2019Q2

REPORT INFORMATION
  Report Type: Spontaneous
  Country: US (occurrence: US)
  Receive Date: 20190507
  Receipt Date: 20190515
  Transmission Date: 20190711
  Serious: Yes (Hospitalization)
  Sender: FDA-Public Use
  Company Number: US-UNITED THERAPEUTICS-UNT-2019-007375

PATIENT
  Age: 64 Year
  Sex: Male
  Weight: 48.73 kg

DRUGS (1)
  1. REMODULIN [Suspect]
     Active Substance: TREPROSTINIL
     Indication: PULMONARY ARTERIAL HYPERTENSION
     Dosage: 0.0266 ?G/KG, CONTINUING
     Route: 041
     Dates: start: 20180215

REACTIONS (2)
  - Ascites [Unknown]
  - Fluid retention [Unknown]

NARRATIVE: CASE EVENT DATE: 20190415
